FAERS Safety Report 22183015 (Version 2)
Quarter: 2023Q2

REPORT INFORMATION
  Report Type: Spontaneous
  Country: US (occurrence: US)
  Receive Date: 20230406
  Receipt Date: 20230425
  Transmission Date: 20230722
  Serious: No
  Sender: FDA-Public Use
  Company Number: US-ALLERGAN-2303182US

PATIENT
  Age: 45 Year
  Sex: Female
  Weight: 70.3 kg

DRUGS (2)
  1. QULIPTA [Suspect]
     Active Substance: ATOGEPANT
     Indication: Migraine
     Dosage: 60 MG, QD
     Route: 048
     Dates: start: 20221206, end: 20221210
  2. QULIPTA [Suspect]
     Active Substance: ATOGEPANT
     Dosage: 60 MG, QD
     Route: 048

REACTIONS (1)
  - Urinary tract infection [Recovered/Resolved]

NARRATIVE: CASE EVENT DATE: 20221206
